FAERS Safety Report 11695362 (Version 2)
Quarter: 2015Q4

REPORT INFORMATION
  Report Type: Report from Study
  Country: US (occurrence: US)
  Receive Date: 20151103
  Receipt Date: 20151120
  Transmission Date: 20160304
  Serious: Yes (Hospitalization, Other)
  Sender: FDA-Public Use
  Company Number: PHHY2015US140913

PATIENT
  Age: 54 Year
  Sex: Male
  Weight: 106 kg

DRUGS (4)
  1. PREDNISONE. [Concomitant]
     Active Substance: PREDNISONE
     Indication: TRANSPLANT REJECTION
     Route: 065
  2. VALCYTE [Concomitant]
     Active Substance: VALGANCICLOVIR HYDROCHLORIDE
     Indication: PRODUCT USED FOR UNKNOWN INDICATION
     Dosage: UNK
     Route: 065
     Dates: start: 20141006
  3. MYFORTIC [Suspect]
     Active Substance: MYCOPHENOLATE SODIUM
     Indication: RENAL TRANSPLANT
     Dosage: 360 MG, BID
     Route: 048
     Dates: start: 20140707
  4. PROGRAF [Suspect]
     Active Substance: TACROLIMUS\TACROLIMUS ANHYDROUS
     Indication: RENAL TRANSPLANT
     Dosage: 3 MG, BID
     Route: 048
     Dates: start: 20141016

REACTIONS (24)
  - Hiccups [Recovered/Resolved]
  - Acute kidney injury [Recovered/Resolved]
  - Escherichia bacteraemia [Unknown]
  - Urosepsis [Recovered/Resolved]
  - Kidney infection [Unknown]
  - Asthenia [Unknown]
  - White blood cell count increased [Unknown]
  - Pneumonia [Unknown]
  - Diabetic microangiopathy [Unknown]
  - Limb injury [Unknown]
  - Decreased appetite [Unknown]
  - Weight decreased [Unknown]
  - Lethargy [Unknown]
  - Mental status changes [Recovering/Resolving]
  - Diarrhoea [Unknown]
  - Nausea [Unknown]
  - Vomiting [Unknown]
  - Escherichia sepsis [Recovered/Resolved]
  - Urine output decreased [Unknown]
  - Chest discomfort [Unknown]
  - Hiccups [Unknown]
  - Abdominal pain lower [Unknown]
  - Pyrexia [Unknown]
  - Headache [Unknown]

NARRATIVE: CASE EVENT DATE: 20150511
